FAERS Safety Report 21524254 (Version 7)
Quarter: 2023Q4

REPORT INFORMATION
  Report Type: Spontaneous
  Country: US (occurrence: US)
  Receive Date: 20221029
  Receipt Date: 20231204
  Transmission Date: 20240109
  Serious: No
  Sender: FDA-Public Use
  Company Number: US-NOVARTISTESTPH-NVSC2022US241774

PATIENT
  Sex: Male

DRUGS (1)
  1. COSENTYX [Suspect]
     Active Substance: SECUKINUMAB
     Indication: Product used for unknown indication
     Dosage: 300 MG, QMO
     Route: 065
     Dates: start: 202105

REACTIONS (4)
  - COVID-19 [Unknown]
  - Injection site pain [Unknown]
  - Liquid product physical issue [Unknown]
  - Product contamination physical [Unknown]
